FAERS Safety Report 16186495 (Version 1)
Quarter: 2019Q2

REPORT INFORMATION
  Report Type: Spontaneous
  Country: JP (occurrence: JP)
  Receive Date: 20190411
  Receipt Date: 20190411
  Transmission Date: 20190711
  Serious: Yes (Other)
  Sender: FDA-Public Use
  Company Number: JP-BAYER-2019-070780

PATIENT
  Sex: Female

DRUGS (2)
  1. YAZ [Suspect]
     Active Substance: DROSPIRENONE\ETHINYL ESTRADIOL
     Indication: DYSMENORRHOEA
  2. YAZ [Suspect]
     Active Substance: DROSPIRENONE\ETHINYL ESTRADIOL
     Indication: ADENOMYOSIS
     Dosage: UNK
     Route: 048

REACTIONS (3)
  - Sudden hearing loss [Not Recovered/Not Resolved]
  - Inappropriate schedule of product administration [None]
  - Headache [None]

NARRATIVE: CASE EVENT DATE: 20190405
